FAERS Safety Report 7377566-5 (Version None)
Quarter: 2011Q1

REPORT INFORMATION
  Report Type: 
  Country: None (occurrence: None)
  Receive Date: 20110328
  Receipt Date: 20110321
  Transmission Date: 20110831
  Serious: Yes (Hospitalization)
  Sender: FDA-Public Use
  Company Number: FR-SANOFI-AVENTIS-2011SA016727

PATIENT
  Age: 70 Year
  Sex: Male

DRUGS (8)
  1. CORDARONE [Suspect]
     Route: 048
  2. LOVENOX [Suspect]
     Route: 058
     Dates: start: 20101001, end: 20101020
  3. CONTRAMAL [Suspect]
     Route: 048
  4. COUMADIN [Suspect]
     Route: 048
     Dates: start: 20101015, end: 20101020
  5. ELISOR [Concomitant]
     Route: 048
  6. NICOPATCH [Concomitant]
     Route: 062
  7. AMLODIPINE BESYLATE [Concomitant]
     Route: 048
  8. ACETAMINOPHEN [Suspect]
     Dosage: 8 TIMES PER DAY
     Route: 048

REACTIONS (2)
  - EPISTAXIS [None]
  - PNEUMONIA ASPIRATION [None]
